FAERS Safety Report 5368692-0 (Version None)
Quarter: 2007Q2

REPORT INFORMATION
  Report Type: 
  Country: None (occurrence: None)
  Receive Date: 20070625
  Receipt Date: 20070329
  Transmission Date: 20071010
  Serious: No
  Sender: FDA-Public Use
  Company Number: US-BRISTOL-MYERS SQUIBB COMPANY-13731815

PATIENT
  Age: 65 Year
  Sex: Female
  Weight: 86 kg

DRUGS (8)
  1. ORENCIA [Suspect]
     Indication: RHEUMATOID ARTHRITIS
     Dates: start: 20061127, end: 20070327
  2. EFFEXOR XR [Concomitant]
  3. POTASSIUM ACETATE [Concomitant]
  4. REQUIP [Concomitant]
  5. LOPRESSOR [Concomitant]
  6. PROTONIX [Concomitant]
  7. HYDROCODONE BITARTRATE [Concomitant]
  8. NORCO [Concomitant]

REACTIONS (5)
  - BACK PAIN [None]
  - BLOOD PRESSURE ABNORMAL [None]
  - BODY TEMPERATURE INCREASED [None]
  - HEART RATE INCREASED [None]
  - PAIN IN EXTREMITY [None]
